FAERS Safety Report 6663236-5 (Version None)
Quarter: 2010Q2

REPORT INFORMATION
  Report Type: 
  Country: None (occurrence: None)
  Receive Date: 20100401
  Receipt Date: 20100325
  Transmission Date: 20101027
  Serious: Yes (Hospitalization)
  Sender: FDA-Public Use
  Company Number: PHHO2010BR03550

PATIENT
  Sex: Male
  Weight: 69.2 kg

DRUGS (4)
  1. AEB071 AEB+GELCAP [Suspect]
     Indication: RENAL TRANSPLANT
     Dosage: 400 MG
     Route: 048
     Dates: start: 20100107, end: 20100304
  2. CERTICAN [Suspect]
     Indication: PROPHYLAXIS AGAINST TRANSPLANT REJECTION
     Dosage: 4 MG, BID
     Route: 048
     Dates: start: 20100107, end: 20100304
  3. TACROLIMUS [Concomitant]
  4. MYFORTIC [Concomitant]

REACTIONS (2)
  - ARTHRALGIA [None]
  - TRANSPLANT REJECTION [None]
